FAERS Safety Report 17632930 (Version 4)
Quarter: 2020Q3

REPORT INFORMATION
  Report Type: Spontaneous
  Country: US (occurrence: US)
  Receive Date: 20200406
  Receipt Date: 20200814
  Transmission Date: 20201102
  Serious: No
  Sender: FDA-Public Use
  Company Number: US-SA-2020SA084784

PATIENT

DRUGS (2)
  1. DUPIXENT [Suspect]
     Active Substance: DUPILUMAB
     Dosage: 300 MG, QOW
     Route: 058
     Dates: start: 2020
  2. DUPIXENT [Suspect]
     Active Substance: DUPILUMAB
     Indication: DERMATITIS ATOPIC
     Dosage: 300 MG, QOW
     Route: 058
     Dates: start: 20200313, end: 202007

REACTIONS (5)
  - Skin exfoliation [Unknown]
  - Dermatitis atopic [Unknown]
  - Product use issue [Unknown]
  - Dry skin [Unknown]
  - Eye infection [Unknown]

NARRATIVE: CASE EVENT DATE: 202003
